FAERS Safety Report 7375614-X (Version None)
Quarter: 2011Q1

REPORT INFORMATION
  Report Type: 
  Country: None (occurrence: None)
  Receive Date: 20110325
  Receipt Date: 20110319
  Transmission Date: 20110831
  Serious: Yes (Hospitalization)
  Sender: FDA-Public Use
  Company Number: US-GENENTECH-307494

PATIENT
  Sex: Female

DRUGS (4)
  1. MIRTAZAPINE [Concomitant]
     Indication: DEPRESSION
     Dosage: 30 MG, QHS
     Route: 048
  2. ALPRAZOLAM [Concomitant]
     Indication: ANXIETY
     Dosage: 2.5 MG, PRN
     Route: 048
     Dates: start: 20080101
  3. SIMVASTATIN [Concomitant]
     Indication: HYPERCHOLESTEROLAEMIA
     Dosage: 40 MG, QHS
     Route: 048
     Dates: start: 20080101
  4. RANIBIZUMAB [Suspect]
     Indication: MACULAR DEGENERATION
     Dosage: 0.05 ML, 1/MONTH
     Route: 031
     Dates: start: 20100430

REACTIONS (1)
  - ACUTE MYOCARDIAL INFARCTION [None]
